FAERS Safety Report 6806512-5 (Version None)
Quarter: 2010Q2

REPORT INFORMATION
  Report Type: 
  Country: None (occurrence: None)
  Receive Date: 20100629
  Receipt Date: 20080609
  Transmission Date: 20101027
  Serious: Yes (Other)
  Sender: FDA-Public Use
  Company Number: US-PFIZER INC-2008022518

PATIENT
  Sex: Male

DRUGS (3)
  1. TIKOSYN [Suspect]
     Indication: ATRIAL FIBRILLATION
  2. HYDROCHLOROTHIAZIDE [Suspect]
  3. PROPAFENONE HCL [Suspect]

REACTIONS (1)
  - TORSADE DE POINTES [None]
